FAERS Safety Report 17009376 (Version 1)
Quarter: 2019Q4

REPORT INFORMATION
  Report Type: Spontaneous
  Country: US (occurrence: US)
  Receive Date: 20191108
  Receipt Date: 20191108
  Transmission Date: 20200122
  Serious: Yes (Other)
  Sender: FDA-Public Use
  Company Number: US-KERYX BIOPHARMACEUTICALS INC.-2019US005876

PATIENT
  Age: 58 Year
  Sex: Male

DRUGS (1)
  1. AURYXIA [Suspect]
     Active Substance: TETRAFERRIC TRICITRATE DECAHYDRATE
     Indication: HYPERPHOSPHATAEMIA
     Dosage: 3-4 TABLETS, PER MEAL FOR 3-4 YEARS
     Route: 048
     Dates: end: 20191018

REACTIONS (1)
  - Hepatic enzyme increased [Not Recovered/Not Resolved]
